FAERS Safety Report 4414394-4 (Version None)
Quarter: 2004Q3

REPORT INFORMATION
  Report Type: 
  Country: None (occurrence: None)
  Receive Date: 20040729
  Receipt Date: 20040713
  Transmission Date: 20050211
  Serious: Yes (Death, Hospitalization)
  Sender: FDA-Public Use
  Company Number: 2004-DE-03871GD

PATIENT
  Sex: Male

DRUGS (7)
  1. IBUPROFEN [Suspect]
     Indication: SCHNITZLER'S SYNDROME
     Dosage: 1200 MG
  2. ASPIRIN [Suspect]
     Indication: SCHNITZLER'S SYNDROME
     Dosage: 3 G
  3. PREDNISONE [Suspect]
     Indication: SCHNITZLER'S SYNDROME
     Dosage: 50 MG
  4. LOSARTAN (LOSARTAN) [Concomitant]
  5. ATENOLOL [Concomitant]
  6. FOLATE (FOLATE SODIUM) [Concomitant]
  7. VITAMIN B SUPPLEMENT (VITAMIN B) [Concomitant]

REACTIONS (15)
  - ACTIVATED PARTIAL THROMBOPLASTIN TIME PROLONGED [None]
  - ACUTE MYOCARDIAL INFARCTION [None]
  - ACUTE RESPIRATORY DISTRESS SYNDROME [None]
  - BLOOD HOMOCYSTEINE INCREASED [None]
  - CARDIOLIPIN ANTIBODY POSITIVE [None]
  - DRUG INEFFECTIVE [None]
  - HYPERTENSION [None]
  - INTERNATIONAL NORMALISED RATIO INCREASED [None]
  - ISCHAEMIC STROKE [None]
  - OESOPHAGEAL CANDIDIASIS [None]
  - PERICARDIAL EFFUSION [None]
  - PNEUMONIA STAPHYLOCOCCAL [None]
  - PULMONARY OEDEMA [None]
  - RETINAL VASCULITIS [None]
  - TRANSIENT ISCHAEMIC ATTACK [None]
